FAERS Safety Report 6110056-6 (Version None)
Quarter: 2009Q1

REPORT INFORMATION
  Report Type: 
  Country: None (occurrence: None)
  Receive Date: 20090310
  Receipt Date: 20090105
  Transmission Date: 20090719
  Serious: No
  Sender: FDA-Public Use
  Company Number: A0762108A

PATIENT
  Age: 45 Year
  Sex: Female

DRUGS (4)
  1. NICORETTE (MINT) [Suspect]
  2. NICODERM CQ [Suspect]
     Dates: start: 20081227, end: 20081227
  3. NICODERM CQ [Suspect]
     Dates: start: 20081228, end: 20081228
  4. SYNTHROID [Concomitant]

REACTIONS (4)
  - ANXIETY [None]
  - FATIGUE [None]
  - INTENTIONAL DRUG MISUSE [None]
  - OROPHARYNGEAL PAIN [None]
